FAERS Safety Report 7806860-6 (Version None)
Quarter: 2011Q4

REPORT INFORMATION
  Report Type: 
  Country: None (occurrence: None)
  Receive Date: 20111011
  Receipt Date: 20110929
  Transmission Date: 20120403
  Serious: Yes (Life-Threatening, Hospitalization)
  Sender: FDA-Public Use
  Company Number: JP-PFIZER INC-2009295198

PATIENT
  Age: 55 Year
  Sex: Female
  Weight: 50 kg

DRUGS (4)
  1. NORVASC [Suspect]
     Dosage: 140 MG, SINGLE
     Route: 048
     Dates: start: 20091105, end: 20091105
  2. NORVASC [Suspect]
     Indication: HYPERTENSION
     Dosage: 5 MG, UNK
  3. OLMESARTAN MEDOXOMIL [Suspect]
     Indication: HYPERTENSION
     Dosage: 10 MG, UNK
  4. OLMESARTAN MEDOXOMIL [Suspect]
     Dosage: 180 MG, SINGLE

REACTIONS (5)
  - URINE OUTPUT DECREASED [None]
  - SHOCK [None]
  - SUICIDE ATTEMPT [None]
  - HYPOTENSION [None]
  - OVERDOSE [None]
